FAERS Safety Report 16648964 (Version 13)
Quarter: 2020Q1

REPORT INFORMATION
  Report Type: Report from Study
  Country: KR (occurrence: KR)
  Receive Date: 20190730
  Receipt Date: 20200304
  Transmission Date: 20200409
  Serious: Yes (Death, Hospitalization)
  Sender: FDA-Public Use
  Company Number: KR-EISAI MEDICAL RESEARCH-EC-2019-059009

PATIENT
  Age: 60 Year
  Sex: Female

DRUGS (13)
  1. LENVATINIB [Suspect]
     Active Substance: LENVATINIB
     Indication: TRIPLE NEGATIVE BREAST CANCER
     Route: 048
     Dates: start: 20190621, end: 20190703
  2. PEMBROLIZUMAB. [Suspect]
     Active Substance: PEMBROLIZUMAB
     Indication: TRIPLE NEGATIVE BREAST CANCER
     Route: 041
     Dates: start: 20190621, end: 20190621
  3. IRCODON [Concomitant]
     Active Substance: OXYCODONE HYDROCHLORIDE
     Dates: start: 201904, end: 20190627
  4. HYSONE [Concomitant]
     Dates: start: 20190523, end: 20190725
  5. MEDILAC-DS [Concomitant]
     Dates: start: 20190524
  6. MYPOL [Concomitant]
     Dates: start: 201904, end: 20190703
  7. HYSONE [Concomitant]
     Dates: start: 20190523
  8. URSA TABLETS [Concomitant]
     Dates: start: 20190529
  9. LASIX [Concomitant]
     Active Substance: FUROSEMIDE
     Dates: start: 20190620, end: 20190703
  10. POLYBUTINE [Concomitant]
     Dates: start: 20190524
  11. ALDACTONE [Concomitant]
     Active Substance: SPIRONOLACTONE
     Dates: start: 20190620, end: 20190703
  12. FREAMINE III NOS [Concomitant]
     Active Substance: AMINO ACIDS
     Dates: start: 20190704, end: 20190704
  13. SPIRONOLACTONE. [Concomitant]
     Active Substance: SPIRONOLACTONE
     Dates: start: 20190620, end: 20190703

REACTIONS (2)
  - Pulmonary embolism [Recovered/Resolved with Sequelae]
  - Pneumothorax [Recovered/Resolved]

NARRATIVE: CASE EVENT DATE: 20190704
